FAERS Safety Report 4731597-X (Version None)
Quarter: 2005Q3

REPORT INFORMATION
  Report Type: 
  Country: None (occurrence: None)
  Receive Date: 20050802
  Receipt Date: 20050608
  Transmission Date: 20060218
  Serious: Yes (Hospitalization)
  Sender: FDA-Public Use
  Company Number: JP-ROCHE-407253

PATIENT
  Age: 32 Year
  Sex: Female

DRUGS (21)
  1. MYCOPHENOLATE MOFETIL [Suspect]
     Route: 048
     Dates: end: 20030324
  2. MYCOPHENOLATE MOFETIL [Suspect]
     Route: 048
     Dates: start: 20030329, end: 20030510
  3. MYCOPHENOLATE MOFETIL [Suspect]
     Route: 048
     Dates: start: 20030511, end: 20030513
  4. MYCOPHENOLATE MOFETIL [Suspect]
     Route: 048
     Dates: start: 20030514, end: 20030703
  5. MYCOPHENOLATE MOFETIL [Suspect]
     Route: 048
     Dates: start: 20030704, end: 20030902
  6. MYCOPHENOLATE MOFETIL [Suspect]
     Route: 048
     Dates: start: 20030903, end: 20030903
  7. MYCOPHENOLATE MOFETIL [Suspect]
     Route: 048
     Dates: start: 20030904, end: 20031009
  8. MYCOPHENOLATE MOFETIL [Suspect]
     Route: 048
     Dates: start: 20031010, end: 20031023
  9. MYCOPHENOLATE MOFETIL [Suspect]
     Route: 048
     Dates: start: 20031024
  10. MYCOPHENOLATE MOFETIL [Suspect]
     Route: 048
     Dates: start: 20031118
  11. NEORAL [Suspect]
     Route: 048
  12. NEORAL [Suspect]
     Route: 048
     Dates: start: 20021101
  13. PREDNISOLONE [Suspect]
     Route: 048
  14. PREDNISOLONE [Suspect]
     Dosage: RANGE REPORTED: 0-10MG
     Route: 048
     Dates: start: 20021101
  15. ANPLAG [Concomitant]
     Route: 048
     Dates: start: 20021101, end: 20030820
  16. EPADEL [Concomitant]
     Route: 048
     Dates: start: 20021101, end: 20030703
  17. MEVALOTIN [Concomitant]
     Route: 048
     Dates: start: 20021101, end: 20031205
  18. DIOVAN [Concomitant]
     Route: 048
     Dates: start: 20021207, end: 20030612
  19. ALOSITOL [Concomitant]
     Route: 048
     Dates: start: 20030704, end: 20030820
  20. ZANTAC [Concomitant]
     Route: 048
     Dates: start: 20030704, end: 20030820
  21. GASTER [Concomitant]
     Route: 048
     Dates: start: 20031024, end: 20031205

REACTIONS (8)
  - ANAEMIA [None]
  - ANOREXIA [None]
  - GASTRIC ULCER [None]
  - HAEMORRHOIDS [None]
  - MELAENA [None]
  - PROCTALGIA [None]
  - PYREXIA [None]
  - VOMITING [None]
